FAERS Safety Report 16149869 (Version 2)
Quarter: 2019Q2

REPORT INFORMATION
  Report Type: Report from Study
  Country: CA (occurrence: CA)
  Receive Date: 20190403
  Receipt Date: 20190506
  Transmission Date: 20190711
  Serious: Yes (Hospitalization)
  Sender: FDA-Public Use
  Company Number: CA-TAKEDA-2017TUS026065

PATIENT
  Age: 36 Year
  Sex: Female

DRUGS (14)
  1. HYDROMORPHONE [Concomitant]
     Active Substance: HYDROMORPHONE
     Dosage: UNK
  2. ATIVAN [Concomitant]
     Active Substance: LORAZEPAM
     Dosage: UNK
  3. VEDOLIZUMAB [Suspect]
     Active Substance: VEDOLIZUMAB
     Dosage: 300 MILLIGRAM
     Route: 042
  4. VITAMIN B12 [Concomitant]
     Active Substance: CYANOCOBALAMIN
     Dosage: UNK
  5. IMURAN [Concomitant]
     Active Substance: AZATHIOPRINE
     Dosage: UNK
  6. VEDOLIZUMAB [Suspect]
     Active Substance: VEDOLIZUMAB
     Indication: CROHN^S DISEASE
     Dosage: 300 MILLIGRAM
     Route: 042
     Dates: start: 20171102
  7. GABAPENTIN. [Concomitant]
     Active Substance: GABAPENTIN
     Dosage: UNK
  8. TYLENOL [Concomitant]
     Active Substance: ACETAMINOPHEN
     Dosage: UNK
  9. GAVISCON                           /00237601/ [Concomitant]
     Active Substance: ALUMINUM HYDROXIDE\MAGNESIUM CARBONATE
     Dosage: UNK
  10. RANITIDINE. [Concomitant]
     Active Substance: RANITIDINE
     Dosage: UNK
  11. VEDOLIZUMAB [Suspect]
     Active Substance: VEDOLIZUMAB
     Dosage: 300 MILLIGRAM
     Route: 042
  12. VEDOLIZUMAB [Suspect]
     Active Substance: VEDOLIZUMAB
     Dosage: 300 MILLIGRAM, Q4WEEKS
     Route: 042
     Dates: start: 20190207
  13. VEDOLIZUMAB [Suspect]
     Active Substance: VEDOLIZUMAB
     Dosage: 300 MILLIGRAM, Q4WEEKS
     Route: 042
  14. CITALOPRAM [Concomitant]
     Active Substance: CITALOPRAM HYDROBROMIDE
     Dosage: UNK

REACTIONS (8)
  - Therapeutic reaction time decreased [Unknown]
  - Eye inflammation [Not Recovered/Not Resolved]
  - Off label use [Unknown]
  - Diarrhoea [Recovered/Resolved]
  - Swelling [Not Recovered/Not Resolved]
  - Arthritis [Not Recovered/Not Resolved]
  - Constipation [Recovered/Resolved]
  - Crohn^s disease [Not Recovered/Not Resolved]

NARRATIVE: CASE EVENT DATE: 2017
